FAERS Safety Report 15342080 (Version 2)
Quarter: 2018Q4

REPORT INFORMATION
  Report Type: Spontaneous
  Country: US (occurrence: US)
  Receive Date: 20180902
  Receipt Date: 20181207
  Transmission Date: 20190204
  Serious: Yes (Hospitalization, Other)
  Sender: FDA-Public Use
  Company Number: US-PRINSTON PHARMACEUTICAL INC.-2018PRN01059

PATIENT
  Sex: Female
  Weight: 83.9 kg

DRUGS (5)
  1. UNSPECIFIED DIABETIC MEDICATIONS [Concomitant]
     Active Substance: UNSPECIFIED INGREDIENT
  2. VALSARTAN AND HYDROCHLOROTHIAZIDE [Suspect]
     Active Substance: HYDROCHLOROTHIAZIDE\VALSARTAN
     Indication: BLOOD PRESSURE ABNORMAL
     Dosage: 320/25 MG, 1X/DAY
     Route: 048
     Dates: start: 2008, end: 2018
  3. LEVOTHYROXINE. [Concomitant]
     Active Substance: LEVOTHYROXINE
  4. UNSPECIFIED INSULIN [Concomitant]
     Active Substance: INSULIN NOS
  5. VALSARTAN AND HYDROCHLOROTHIAZIDE [Suspect]
     Active Substance: HYDROCHLOROTHIAZIDE\VALSARTAN
     Dosage: 320/25 MG, 1X/DAY
     Route: 048
     Dates: start: 2018

REACTIONS (2)
  - Atrial fibrillation [Unknown]
  - Breast cancer female [Recovered/Resolved]

NARRATIVE: CASE EVENT DATE: 2016
